FAERS Safety Report 19047356 (Version 1)
Quarter: 2021Q1

REPORT INFORMATION
  Report Type: Report from Study
  Country: CA (occurrence: CA)
  Receive Date: 20210323
  Receipt Date: 20210323
  Transmission Date: 20210420
  Serious: Yes (Other)
  Sender: FDA-Public Use
  Company Number: CA-OTSUKA-2021_002344

PATIENT
  Sex: Male

DRUGS (2)
  1. ASTX727 [Suspect]
     Active Substance: CEDAZURIDINE\DECITABINE
     Indication: MYELODYSPLASTIC SYNDROME
     Dosage: 135 MG (35 MG DECITABINE AND 100 MG CEDAZURIDINE) , UNK
     Route: 065
     Dates: start: 20201228
  2. ASTX727 [Suspect]
     Active Substance: CEDAZURIDINE\DECITABINE
     Indication: CHRONIC MYELOMONOCYTIC LEUKAEMIA

REACTIONS (4)
  - Platelet count decreased [Unknown]
  - Product storage error [Unknown]
  - White blood cell count decreased [Unknown]
  - Skin discolouration [Unknown]
